FAERS Safety Report 6705329-X (Version None)
Quarter: 2010Q2

REPORT INFORMATION
  Report Type: 
  Country: None (occurrence: None)
  Receive Date: 20100501
  Receipt Date: 20100420
  Transmission Date: 20101027
  Serious: Yes (Hospitalization)
  Sender: FDA-Public Use
  Company Number: FR-ELI_LILLY_AND_COMPANY-FR201001006017

PATIENT
  Age: 78 Year
  Sex: Female

DRUGS (13)
  1. FORTEO [Suspect]
     Indication: OSTEOPOROSIS
     Dosage: 20 UG, DAILY (1/D)
     Route: 058
     Dates: start: 20090701, end: 20100124
  2. FORTEO [Suspect]
     Dosage: 20 UG, DAILY (1/D)
     Route: 058
     Dates: start: 20100202
  3. PREVISCAN [Concomitant]
     Dosage: UNK, UNKNOWN
     Route: 065
  4. OXEOL [Concomitant]
     Dosage: UNK, UNKNOWN
     Route: 065
  5. CORTANCYL [Concomitant]
     Dosage: UNK, UNKNOWN
     Route: 065
  6. ISOPTIN [Concomitant]
     Dosage: UNK, UNKNOWN
     Route: 065
  7. GLUCOR [Concomitant]
     Dosage: UNK, UNKNOWN
     Route: 065
  8. NEXIUM [Concomitant]
     Dosage: UNK, UNKNOWN
     Route: 065
  9. SERETIDE [Concomitant]
     Dosage: UNK, UNKNOWN
     Route: 065
  10. LASIX [Concomitant]
     Dosage: UNK, UNKNOWN
     Route: 065
  11. TAHOR [Concomitant]
     Dosage: UNK, UNKNOWN
     Route: 065
  12. LYRICA [Concomitant]
     Dosage: UNK, UNKNOWN
     Route: 065
  13. GLYBURIDE [Concomitant]
     Indication: DIABETES MELLITUS
     Dosage: UNK, UNKNOWN
     Route: 065

REACTIONS (2)
  - BRONCHITIS [None]
  - DYSPNOEA [None]
